FAERS Safety Report 14276710 (Version 18)
Quarter: 2019Q1

REPORT INFORMATION
  Report Type: Report from Study
  Country: BE (occurrence: BE)
  Receive Date: 20171212
  Receipt Date: 20190314
  Transmission Date: 20190417
  Serious: Yes (Hospitalization, Other)
  Sender: FDA-Public Use
  Company Number: BE-PFIZER INC-2017521688

PATIENT
  Age: 79 Year
  Sex: Male
  Weight: 57 kg

DRUGS (10)
  1. BEVACIZUMAB. [Suspect]
     Active Substance: BEVACIZUMAB
     Indication: COLORECTAL CANCER METASTATIC
     Dosage: 1 G, CYCLIC (EVERY TWO WEEKS)
     Route: 042
     Dates: start: 20170504, end: 2017
  2. INNOHEP [Concomitant]
     Active Substance: TINZAPARIN SODIUM
     Dosage: UNK
  3. PANTOMED /01263204/ [Concomitant]
     Active Substance: PANTOPRAZOLE SODIUM
     Dosage: UNK
  4. IRINOTECAN HCL [Suspect]
     Active Substance: IRINOTECAN HYDROCHLORIDE
     Indication: COLORECTAL CANCER METASTATIC
     Dosage: 1 G, CYCLIC (EVERY TWO WEEKS)
     Route: 042
     Dates: start: 20170504, end: 2017
  5. DOMPERIDONE [Concomitant]
     Active Substance: DOMPERIDONE
     Dosage: UNK
     Route: 065
     Dates: start: 20170518
  6. FOLINIC ACID /00566702/ [Suspect]
     Active Substance: LEUCOVORIN CALCIUM
     Indication: COLORECTAL CANCER METASTATIC
     Dosage: 648-650 MG
     Route: 050
  7. INNOHEP [Concomitant]
     Active Substance: TINZAPARIN SODIUM
     Dosage: UNK
     Route: 065
     Dates: start: 20150924
  8. LAXIDO [Concomitant]
     Active Substance: POLYETHYLENE GLYCOL 3350\POTASSIUM CHLORIDE\SODIUM BICARBONATE\SODIUM CHLORIDE
     Dosage: UNK
  9. DOMPERIDONE [Concomitant]
     Active Substance: DOMPERIDONE
     Dosage: UNK
  10. FLUOROURACILO SANDOZ [Suspect]
     Active Substance: FLUOROURACIL
     Indication: COLORECTAL CANCER METASTATIC
     Dosage: 1 G, CYCLIC (ONCE EVERY 2 WEEKS)
     Route: 042
     Dates: start: 20170504, end: 2017

REACTIONS (12)
  - Dysgeusia [Not Recovered/Not Resolved]
  - Pyrexia [Recovered/Resolved]
  - Fatigue [Not Recovered/Not Resolved]
  - Dry mouth [Recovered/Resolved]
  - Palmar-plantar erythrodysaesthesia syndrome [Recovered/Resolved]
  - Rhinorrhoea [Not Recovered/Not Resolved]
  - Nausea [Not Recovered/Not Resolved]
  - Musculoskeletal pain [Recovered/Resolved]
  - Device related sepsis [Recovered/Resolved]
  - Decreased appetite [Not Recovered/Not Resolved]
  - Lacrimation increased [Not Recovered/Not Resolved]
  - Sepsis [Recovered/Resolved]

NARRATIVE: CASE EVENT DATE: 20170518
